FAERS Safety Report 15029375 (Version 2)
Quarter: 2018Q3

REPORT INFORMATION
  Report Type: Spontaneous
  Country: US (occurrence: US)
  Receive Date: 20180619
  Receipt Date: 20180710
  Transmission Date: 20181010
  Serious: Yes (Other)
  Sender: FDA-Public Use
  Company Number: US-HERITAGE PHARMACEUTICALS-2018HTG00126

PATIENT
  Age: 63 Year
  Sex: Female
  Weight: 91.61 kg

DRUGS (10)
  1. LYRICA [Concomitant]
     Active Substance: PREGABALIN
  2. OXYMORPHONE [Concomitant]
     Active Substance: OXYMORPHONE
  3. BACLOFEN. [Concomitant]
     Active Substance: BACLOFEN
  4. RANITIDINE. [Concomitant]
     Active Substance: RANITIDINE
  5. QUETIAPINE. [Concomitant]
     Active Substance: QUETIAPINE
  6. VENTOLIN [Concomitant]
     Active Substance: ALBUTEROL SULFATE
  7. NORCO [Concomitant]
     Active Substance: ACETAMINOPHEN\HYDROCODONE BITARTRATE
  8. METOPROLOL SUCCINATE. [Concomitant]
     Active Substance: METOPROLOL SUCCINATE
  9. DOXYCYCLINE. [Suspect]
     Active Substance: DOXYCYCLINE
     Indication: FURUNCLE
     Dosage: 100 MG, 2X/DAY
     Route: 048
     Dates: start: 201805, end: 201805
  10. FLUOXETINE [Concomitant]
     Active Substance: FLUOXETINE HYDROCHLORIDE

REACTIONS (18)
  - Swollen tongue [Recovered/Resolved]
  - Dizziness [Not Recovered/Not Resolved]
  - Oral mucosal blistering [Not Recovered/Not Resolved]
  - Blister [Not Recovered/Not Resolved]
  - Malaise [Not Recovered/Not Resolved]
  - Burning sensation [Recovered/Resolved]
  - Dyspnoea [Recovered/Resolved]
  - Lip pain [Not Recovered/Not Resolved]
  - Pruritus [Recovered/Resolved]
  - Pain [Not Recovered/Not Resolved]
  - Disturbance in attention [Not Recovered/Not Resolved]
  - Rhinorrhoea [Not Recovered/Not Resolved]
  - Lip swelling [Not Recovered/Not Resolved]
  - Oedema blister [Not Recovered/Not Resolved]
  - Odynophagia [Not Recovered/Not Resolved]
  - Blister rupture [Not Recovered/Not Resolved]
  - Chapped lips [Not Recovered/Not Resolved]
  - Stomatitis [Not Recovered/Not Resolved]

NARRATIVE: CASE EVENT DATE: 201805
